FAERS Safety Report 7340910-9 (Version None)
Quarter: 2011Q1

REPORT INFORMATION
  Report Type: 
  Country: None (occurrence: None)
  Receive Date: 20110309
  Receipt Date: 20100507
  Transmission Date: 20110831
  Serious: No
  Sender: FDA-Public Use
  Company Number: US-ABBOTT-10P-163-0643666-00

PATIENT
  Sex: Female
  Weight: 54.48 kg

DRUGS (3)
  1. ADD BACK THERAPY [Concomitant]
     Indication: PROPHYLAXIS
  2. LUPRON DEPOT [Suspect]
     Indication: ENDOMETRIOSIS
     Route: 050
     Dates: start: 20100331
  3. LUPRON DEPOT [Suspect]
     Route: 050

REACTIONS (3)
  - NO THERAPEUTIC RESPONSE [None]
  - MENORRHAGIA [None]
  - HOT FLUSH [None]
